FAERS Safety Report 21966270 (Version 4)
Quarter: 2023Q2

REPORT INFORMATION
  Report Type: Report from Study
  Country: US (occurrence: US)
  Receive Date: 20230208
  Receipt Date: 20230615
  Transmission Date: 20230722
  Serious: No
  Sender: FDA-Public Use
  Company Number: US-002147023-NVSC2023US003678

PATIENT
  Sex: Male

DRUGS (1)
  1. ENTRESTO [Suspect]
     Active Substance: SACUBITRIL\VALSARTAN
     Indication: Product used for unknown indication
     Dosage: 1 DOSAGE FORM, BID
     Route: 048

REACTIONS (8)
  - Abdominal distension [Unknown]
  - Illness [Unknown]
  - Nasopharyngitis [Unknown]
  - Cough [Unknown]
  - Decreased activity [Unknown]
  - Memory impairment [Unknown]
  - Blood cholesterol abnormal [Unknown]
  - Inappropriate schedule of product administration [Unknown]
